FAERS Safety Report 16445601 (Version 1)
Quarter: 2019Q2

REPORT INFORMATION
  Report Type: Spontaneous
  Country: US (occurrence: US)
  Receive Date: 20190618
  Receipt Date: 20190618
  Transmission Date: 20190711
  Serious: No
  Sender: FDA-Public Use
  Company Number: US-ELI_LILLY_AND_COMPANY-US201906004083

PATIENT
  Age: 48 Year
  Sex: Female

DRUGS (1)
  1. EMGALITY [Suspect]
     Active Substance: GALCANEZUMAB-GNLM
     Indication: PRODUCT USED FOR UNKNOWN INDICATION
     Dosage: UNK, UNKNOWN
     Route: 065
     Dates: start: 20181216

REACTIONS (6)
  - Joint swelling [Not Recovered/Not Resolved]
  - Injection site bruising [Not Recovered/Not Resolved]
  - Migraine [Unknown]
  - Tendon pain [Recovered/Resolved]
  - Injection site pain [Not Recovered/Not Resolved]
  - Product dose omission [Unknown]

NARRATIVE: CASE EVENT DATE: 20181216
